FAERS Safety Report 13153164 (Version 1)
Quarter: 2017Q1

REPORT INFORMATION
  Report Type: Spontaneous
  Country: US (occurrence: US)
  Receive Date: 20170126
  Receipt Date: 20170126
  Transmission Date: 20170428
  Serious: No
  Sender: FDA-Public Use
  Company Number: US-WEST-WARD PHARMACEUTICALS CORP.-US-H14001-16-02187

PATIENT
  Sex: Female
  Weight: 90.8 kg

DRUGS (4)
  1. FLECAINIDE ACETATE. [Suspect]
     Active Substance: FLECAINIDE ACETATE
     Indication: HEART RATE IRREGULAR
     Route: 048
  2. FLECAINIDE ACETATE. [Suspect]
     Active Substance: FLECAINIDE ACETATE
     Indication: TACHYCARDIA
     Route: 065
  3. ASPIRIN. [Concomitant]
     Active Substance: ASPIRIN
     Indication: INFLUENZA
     Route: 065
  4. FLECAINIDE ACETATE. [Suspect]
     Active Substance: FLECAINIDE ACETATE
     Route: 065

REACTIONS (4)
  - Rash [Unknown]
  - Visual impairment [Recovered/Resolved]
  - Drug ineffective [Unknown]
  - Halo vision [Recovered/Resolved]

NARRATIVE: CASE EVENT DATE: 2016
